FAERS Safety Report 7296763-0 (Version None)
Quarter: 2011Q1

REPORT INFORMATION
  Report Type: 
  Country: None (occurrence: None)
  Receive Date: 20110216
  Receipt Date: 20110211
  Transmission Date: 20110831
  Serious: Yes (Other)
  Sender: FDA-Public Use
  Company Number: A0913629A

PATIENT
  Age: 49 Year
  Sex: Female

DRUGS (2)
  1. TYKERB [Suspect]
     Dosage: 1250MG PER DAY
     Dates: start: 20100408
  2. CAPECITABINE [Suspect]
     Dates: start: 20100408

REACTIONS (1)
  - GASTROINTESTINAL TOXICITY [None]
